FAERS Safety Report 4284080-2 (Version None)
Quarter: 2004Q1

REPORT INFORMATION
  Report Type: 
  Country: None (occurrence: None)
  Receive Date: 20040130
  Receipt Date: 20040120
  Transmission Date: 20041129
  Serious: Yes (Other)
  Sender: FDA-Public Use
  Company Number: US-JNJFOC-20040104057

PATIENT
  Age: 46 Year
  Sex: Male

DRUGS (3)
  1. REOPRO [Suspect]
     Indication: STENT PLACEMENT
     Dosage: INJECTION
     Dates: start: 20040119, end: 20040119
  2. PLAVIX [Concomitant]
  3. HEPARIN [Concomitant]

REACTIONS (3)
  - CHEST PAIN [None]
  - CORONARY ARTERY THROMBOSIS [None]
  - GRAFT THROMBOSIS [None]
